FAERS Safety Report 12332233 (Version 1)
Quarter: 2016Q2

REPORT INFORMATION
  Report Type: Spontaneous
  Country: US (occurrence: US)
  Receive Date: 20160504
  Receipt Date: 20160504
  Transmission Date: 20160815
  Serious: No
  Sender: FDA-Public Use
  Company Number: US-ROCHE-1643562

PATIENT
  Sex: Male
  Weight: 98.06 kg

DRUGS (1)
  1. ESBRIET [Suspect]
     Active Substance: PIRFENIDONE
     Indication: IDIOPATHIC PULMONARY FIBROSIS
     Dosage: 3 CAPSULES ORALLY THREE TIMES A DAY WITH FOOD.
     Route: 048
     Dates: start: 20150116, end: 20151221

REACTIONS (4)
  - Decreased appetite [Unknown]
  - Dysgeusia [Unknown]
  - Ageusia [Unknown]
  - Feeling abnormal [Unknown]
